FAERS Safety Report 8845194 (Version 3)
Quarter: 2013Q2

REPORT INFORMATION
  Report Type: Report from Study
  Country: JP (occurrence: JP)
  Receive Date: 20121017
  Receipt Date: 20130510
  Transmission Date: 20140414
  Serious: Yes (Hospitalization)
  Sender: FDA-Public Use
  Company Number: JP-009507513-1210JPN002842

PATIENT
  Age: 52 Year
  Sex: Female
  Weight: 62 kg

DRUGS (43)
  1. PEGINTRON [Suspect]
     Indication: CHRONIC HEPATITIS C
     Dosage: 1.1 MICROGRAM PER KILOGRAM, QW
     Route: 058
     Dates: start: 20120620, end: 20120717
  2. PEGINTRON [Suspect]
     Dosage: 1.2 MICROGRAM PER KILOGRAM, QW
     Route: 058
     Dates: start: 20120718, end: 20120828
  3. PEGINTRON [Suspect]
     Dosage: 1.0 MICROGRAM PER KILOGRAM, QW
     Route: 058
     Dates: start: 20120905, end: 20120911
  4. PEGINTRON [Suspect]
     Dosage: 1.1 MICROGRAM PER KILOGRAM, QW
     Route: 058
     Dates: start: 20120912, end: 20120918
  5. PEGINTRON [Suspect]
     Dosage: 1.2 MICROGRAM PER KILOGRAM, QW
     Route: 058
     Dates: start: 20120919, end: 20121205
  6. REBETOL [Suspect]
     Indication: CHRONIC HEPATITIS C
     Dosage: 400 MG, QD
     Route: 048
     Dates: start: 20120620, end: 20120629
  7. REBETOL [Suspect]
     Dosage: 200 MG, QD
     Route: 048
     Dates: start: 20120630, end: 20120717
  8. REBETOL [Suspect]
     Dosage: 200 MG/ EVERY OTHER DAY
     Route: 048
     Dates: start: 20120718, end: 20120821
  9. REBETOL [Suspect]
     Dosage: 200 MG/ 2 OUT OF 3 DAYS
     Route: 048
     Dates: start: 20120822, end: 20120828
  10. REBETOL [Suspect]
     Dosage: 200 MG/ EVERY OTHER DAY
     Route: 048
     Dates: start: 20120829, end: 20120918
  11. REBETOL [Suspect]
     Dosage: 200 MG, QD
     Route: 048
     Dates: start: 20120919, end: 20121002
  12. REBETOL [Suspect]
     Dosage: 400 MG, QD
     Route: 048
     Dates: start: 20121003, end: 20121016
  13. REBETOL [Suspect]
     Dosage: 200 MG ON ODD NUMBERED DAYS, 400 MG ON EVEN NUMBERED DAYS
     Route: 048
     Dates: start: 20121017, end: 20121023
  14. REBETOL [Suspect]
     Dosage: 400 MG, QD
     Route: 048
     Dates: start: 20121024, end: 20121030
  15. REBETOL [Suspect]
     Dosage: 400 MG ON EVEN NUMBERED DAYS, 600 MG ON ODD NUMBERED DAYS
     Route: 048
     Dates: start: 20121031, end: 20121113
  16. REBETOL [Suspect]
     Dosage: 600 MG, QD
     Route: 048
     Dates: start: 20121114, end: 20121204
  17. REBETOL [Suspect]
     Dosage: 400 MG, QD
     Route: 048
     Dates: start: 20121205
  18. TELAVIC [Suspect]
     Indication: CHRONIC HEPATITIS C
     Dosage: 1500 MG, QD
     Route: 048
     Dates: start: 20120620, end: 20120720
  19. TELAVIC [Suspect]
     Dosage: 750 MG, QD
     Route: 048
     Dates: start: 20120721, end: 20120721
  20. TELAVIC [Suspect]
     Dosage: 1500 MG, QD
     Route: 048
     Dates: start: 20120722, end: 20120731
  21. TELAVIC [Suspect]
     Dosage: 1000 MG, QD
     Route: 048
     Dates: start: 20120801, end: 20120807
  22. TELAVIC [Suspect]
     Dosage: 1250 MG, QD
     Route: 048
     Dates: start: 20120808, end: 20120814
  23. TELAVIC [Suspect]
     Dosage: 1500 MG, QD
     Route: 048
     Dates: start: 20120815, end: 20120821
  24. TELAVIC [Suspect]
     Dosage: 1250 MG, QD
     Route: 048
     Dates: start: 20120822, end: 20120828
  25. TELAVIC [Suspect]
     Dosage: 500 MG, QD
     Route: 048
     Dates: start: 20120829, end: 20120906
  26. TELAVIC [Suspect]
     Dosage: 250 MG, QD
     Route: 048
     Dates: start: 20120907, end: 20120909
  27. TELAVIC [Suspect]
     Dosage: 500 MG, QD
     Route: 048
     Dates: start: 20120910, end: 20120911
  28. TELAVIC [Suspect]
     Dosage: 250 MG, QD
     Route: 048
     Dates: start: 20120912, end: 20120919
  29. URSO [Concomitant]
     Indication: CHRONIC HEPATITIS C
     Dosage: 600 MG, QD, POR
     Route: 048
  30. TALION (BEPOTASTINE BESYLATE) [Concomitant]
     Indication: DERMATITIS ATOPIC
     Dosage: 10 MG, QD
     Route: 048
     Dates: end: 20120814
  31. FULMETA [Concomitant]
     Indication: DERMATITIS ATOPIC
     Dosage: UNK
     Route: 061
  32. [THERAPY UNSPECIFIED] [Concomitant]
     Indication: DERMATITIS ATOPIC
     Dosage: UNK
     Route: 051
  33. PARIET [Concomitant]
     Indication: PROPHYLAXIS
     Dosage: 10 MG, QD, FORMULATION : POR
     Route: 048
     Dates: start: 20120620, end: 20121127
  34. REBAMIPIDE [Concomitant]
     Indication: PROPHYLAXIS
     Dosage: 300 MG, QD, FORMULATION: POR
     Route: 048
     Dates: start: 20120620
  35. VONFENAC [Concomitant]
     Indication: PROPHYLAXIS
     Dosage: 12.5-25 MG, QD, FORMULATION: SUP
     Route: 054
     Dates: start: 20120620
  36. VONFENAC [Concomitant]
     Indication: HEADACHE
     Dosage: 12.5-25 MG/DAY , AS NEEDED
     Route: 054
     Dates: end: 20120624
  37. VONFENAC [Concomitant]
     Dosage: 12.5MG/DAY , AS NEEDED
     Route: 054
     Dates: start: 20120625
  38. LOXONIN [Concomitant]
     Indication: HEADACHE
     Dosage: 60 MG, QD. POR
     Route: 048
     Dates: start: 20120621, end: 20120717
  39. PURSENNID (SENNOSIDES) [Concomitant]
     Indication: CONSTIPATION
     Dosage: 24 MG, QD, POR
     Route: 048
     Dates: start: 20120621
  40. [THERAPY UNSPECIFIED] [Concomitant]
     Indication: HEADACHE
     Dosage: 330 MG, QD
     Route: 048
     Dates: start: 20120718
  41. [THERAPY UNSPECIFIED] [Concomitant]
     Dosage: 300 MG, PRN
     Route: 048
  42. [COMPOSITION UNSPECIFIED] [Concomitant]
     Indication: HEADACHE
     Dosage: 330 MG/ DAY, AS NEEDED
  43. TAKEPRON [Concomitant]
     Indication: PROPHYLAXIS
     Dosage: 30 MG, QD, POR
     Route: 048
     Dates: start: 20121128

REACTIONS (1)
  - Renal impairment [Recovered/Resolved]
